FAERS Safety Report 4694334-3 (Version None)
Quarter: 2005Q2

REPORT INFORMATION
  Report Type: 
  Country: None (occurrence: None)
  Receive Date: 20050614
  Receipt Date: 20050223
  Transmission Date: 20051028
  Serious: No
  Sender: FDA-Public Use
  Company Number: USA050291698

PATIENT
  Sex: Male

DRUGS (5)
  1. CIALIS [Suspect]
     Dosage: 20 MG AS NEEDED
     Dates: start: 20050201
  2. UNSPECIFIED HEART MEDICINE [Concomitant]
  3. ASPIRIN [Concomitant]
  4. ACIPHEX [Concomitant]
  5. UNSPECIFIED CHOLESTEROL MEDICINE [Concomitant]

REACTIONS (3)
  - FEELING ABNORMAL [None]
  - HEADACHE [None]
  - PAIN [None]
